FAERS Safety Report 10196742 (Version 1)
Quarter: 2014Q2

REPORT INFORMATION
  Report Type: Spontaneous
  Country: MY (occurrence: None)
  Receive Date: 20140522
  Receipt Date: 20140522
  Transmission Date: 20141212
  Serious: Yes (Hospitalization, Other)
  Sender: FDA-Public Use
  Company Number: AUR-APL-2014-05944

PATIENT
  Age: 35 Year
  Sex: Female

DRUGS (5)
  1. CEFUROXIME [Suspect]
     Indication: PELVIC INFLAMMATORY DISEASE
     Dosage: 2250 MG
  2. CEFUROXIME [Suspect]
     Indication: PYREXIA
     Dosage: 2250 MG
  3. METRONIDAZOLE [Suspect]
     Indication: PELVIC INFLAMMATORY DISEASE
  4. METRONIDAZOLE [Suspect]
     Indication: PYREXIA
  5. AMPICILLIN (AMPICILLIN) [Concomitant]

REACTIONS (12)
  - Irritability [None]
  - Anger [None]
  - Crying [None]
  - Aggression [None]
  - Decreased appetite [None]
  - Hallucination, auditory [None]
  - Delusion [None]
  - Fear [None]
  - Substance-induced psychotic disorder [None]
  - Abnormal behaviour [None]
  - Feeling guilty [None]
  - Screaming [None]
